FAERS Safety Report 9907358 (Version 1)
Quarter: 2014Q1

REPORT INFORMATION
  Report Type: Spontaneous
  Country: CH (occurrence: CH)
  Receive Date: 20140218
  Receipt Date: 20140218
  Transmission Date: 20141002
  Serious: Yes (Hospitalization)
  Sender: FDA-Public Use
  Company Number: CH-RB-063468-14

PATIENT
  Age: 64 Year
  Sex: Female

DRUGS (15)
  1. TEMGESIC [Suspect]
     Indication: CANCER PAIN
     Route: 060
  2. TRANSTEC [Suspect]
     Indication: CANCER PAIN
     Route: 062
  3. AFINITOR [Suspect]
     Indication: BREAST CANCER STAGE IV
     Route: 048
     Dates: start: 20130503, end: 20130829
  4. AFINITOR [Suspect]
     Route: 048
     Dates: start: 20130830, end: 20131219
  5. AFINITOR [Suspect]
     Dosage: 10 MG/DAILY + 5 MG 1DAY/2
     Route: 048
     Dates: start: 20131220, end: 20140107
  6. NEXIUM [Suspect]
     Indication: PRODUCT USED FOR UNKNOWN INDICATION
     Route: 048
     Dates: end: 201401
  7. CIPRALEX [Suspect]
     Indication: DEPRESSION
     Route: 048
     Dates: start: 201312, end: 20140107
  8. AROMASIN [Concomitant]
     Indication: PRODUCT USED FOR UNKNOWN INDICATION
     Route: 048
  9. XGEVA [Concomitant]
     Indication: PRODUCT USED FOR UNKNOWN INDICATION
     Dosage: DOSING DETAILS UNKNOWN
     Route: 048
  10. IMPORTAL [Concomitant]
     Indication: PRODUCT USED FOR UNKNOWN INDICATION
     Route: 048
  11. XANAX [Concomitant]
     Indication: PRODUCT USED FOR UNKNOWN INDICATION
     Route: 048
  12. SERESTA [Concomitant]
     Indication: PRODUCT USED FOR UNKNOWN INDICATION
     Route: 048
  13. DAFALGAN [Concomitant]
     Indication: PRODUCT USED FOR UNKNOWN INDICATION
     Route: 048
  14. IRFEN [Concomitant]
     Indication: PRODUCT USED FOR UNKNOWN INDICATION
     Route: 048
  15. MAGNESIUM [Concomitant]
     Indication: PRODUCT USED FOR UNKNOWN INDICATION
     Route: 048

REACTIONS (1)
  - Electrocardiogram QT prolonged [Recovered/Resolved]
